FAERS Safety Report 10190928 (Version 1)
Quarter: 2014Q2

REPORT INFORMATION
  Report Type: Report from Study
  Country: CA (occurrence: CA)
  Receive Date: 20140523
  Receipt Date: 20140523
  Transmission Date: 20141212
  Serious: Yes (Other)
  Sender: FDA-Public Use
  Company Number: CA-JNJFOC-20140510637

PATIENT
  Age: 56 Year
  Sex: Female
  Weight: 85.7 kg

DRUGS (10)
  1. REMICADE [Suspect]
     Indication: PSORIATIC ARTHROPATHY
     Dosage: 31ST INFUSION
     Route: 042
     Dates: start: 20140515
  2. REMICADE [Suspect]
     Indication: PSORIATIC ARTHROPATHY
     Route: 042
     Dates: start: 20140404
  3. REMICADE [Suspect]
     Indication: PSORIATIC ARTHROPATHY
     Route: 042
     Dates: start: 20101103
  4. METHADONE [Concomitant]
     Route: 065
  5. OXYCODONE [Concomitant]
     Route: 065
  6. CIPRALEX [Concomitant]
     Route: 065
  7. DEXILANT [Concomitant]
     Route: 065
  8. TESTOSTERONE [Concomitant]
     Route: 065
  9. ESTRADIOL [Concomitant]
     Route: 065
  10. HORMONE REPLACEMENT THERAPY PATCH NOS [Concomitant]
     Route: 065

REACTIONS (3)
  - Fibromyalgia [Recovered/Resolved]
  - Pain of skin [Recovered/Resolved]
  - Hyperaesthesia [Recovered/Resolved]
